FAERS Safety Report 11892520 (Version 2)
Quarter: 2016Q1

REPORT INFORMATION
  Report Type: Spontaneous
  Country: US (occurrence: US)
  Receive Date: 20160106
  Receipt Date: 20160205
  Transmission Date: 20160526
  Serious: No
  Sender: FDA-Public Use
  Company Number: US-JNJFOC-20151216243

PATIENT
  Sex: Male
  Weight: 97.98 kg

DRUGS (3)
  1. PRAVASTATIN [Concomitant]
     Active Substance: PRAVASTATIN\PRAVASTATIN SODIUM
     Route: 065
     Dates: start: 2014
  2. CHLORZOXAZONE/PARACETAMOL [Suspect]
     Active Substance: ACETAMINOPHEN\CHLORZOXAZONE
     Indication: SURGERY
     Route: 048
     Dates: start: 1987
  3. NALOXONE W/PENTAZOCINE [Concomitant]
     Indication: PAIN
     Route: 065
     Dates: start: 1987

REACTIONS (3)
  - Tremor [Recovered/Resolved]
  - Nervousness [Recovered/Resolved]
  - Refusal of treatment by patient [Unknown]
